FAERS Safety Report 5156158-2 (Version None)
Quarter: 2006Q4

REPORT INFORMATION
  Report Type: 
  Country: None (occurrence: None)
  Receive Date: 20061122
  Receipt Date: 20061109
  Transmission Date: 20070319
  Serious: Yes (Other)
  Sender: FDA-Public Use
  Company Number: US-ELI_LILLY_AND_COMPANY-US200611001837

PATIENT
  Age: 64 Year
  Sex: Female

DRUGS (1)
  1. PROZAC [Suspect]
     Dates: start: 20060901, end: 20060901

REACTIONS (2)
  - MULTIPLE MYELOMA [None]
  - TREMOR [None]
